FAERS Safety Report 19448994 (Version 3)
Quarter: 2021Q3

REPORT INFORMATION
  Report Type: Report from Study
  Country: US (occurrence: US)
  Receive Date: 20210622
  Receipt Date: 20210823
  Transmission Date: 20211014
  Serious: Yes (Hospitalization, Other)
  Sender: FDA-Public Use
  Company Number: NVSC2021US132396

PATIENT
  Sex: Male

DRUGS (2)
  1. COSENTYX [Suspect]
     Active Substance: SECUKINUMAB
     Indication: PSORIATIC ARTHROPATHY
     Dosage: UNK UNK, QMO
     Route: 058
     Dates: start: 202012
  2. COSENTYX [Suspect]
     Active Substance: SECUKINUMAB
     Dosage: UNK
     Route: 058

REACTIONS (9)
  - Paraesthesia [Unknown]
  - Memory impairment [Unknown]
  - Upper limb fracture [Recovering/Resolving]
  - Rib fracture [Unknown]
  - Neuropathy peripheral [Unknown]
  - Insomnia [Unknown]
  - Burning sensation [Unknown]
  - Nephrolithiasis [Unknown]
  - Fall [Unknown]

NARRATIVE: CASE EVENT DATE: 2021
